FAERS Safety Report 17149073 (Version 1)
Quarter: 2019Q4

REPORT INFORMATION
  Report Type: Spontaneous
  Country: US (occurrence: US)
  Receive Date: 20191213
  Receipt Date: 20191213
  Transmission Date: 20200122
  Serious: No
  Sender: FDA-Public Use
  Company Number: US-UNITED THERAPEUTICS-UNT-2019-020534

PATIENT
  Age: 81 Year
  Sex: Female
  Weight: 77.55 kg

DRUGS (1)
  1. TYVASO [Suspect]
     Active Substance: TREPROSTINIL
     Indication: PULMONARY ARTERIAL HYPERTENSION
     Dosage: 18-54 ?G, QID
     Dates: start: 20190716

REACTIONS (2)
  - Malaise [Recovering/Resolving]
  - Device malfunction [Unknown]

NARRATIVE: CASE EVENT DATE: 2019
